FAERS Safety Report 5145637-X (Version None)
Quarter: 2006Q4

REPORT INFORMATION
  Report Type: 
  Country: None (occurrence: None)
  Receive Date: 20061101
  Receipt Date: 20061020
  Transmission Date: 20070319
  Serious: Yes (Hospitalization)
  Sender: FDA-Public Use
  Company Number: 2006S1000041

PATIENT
  Age: 58 Year
  Sex: Female
  Weight: 91.173 kg

DRUGS (6)
  1. OXANDRIN [Suspect]
     Indication: DECREASED APPETITE
     Dosage: 2.5 MG; BID; PO
     Route: 048
     Dates: start: 20060901, end: 20061009
  2. POTASSIUM ACETATE [Concomitant]
  3. MAGNESIUM [Concomitant]
  4. ATIVAN [Concomitant]
  5. LISINOPRIL [Concomitant]
  6. CHEMOTHERAPY [Concomitant]

REACTIONS (6)
  - COUGH [None]
  - EPISTAXIS [None]
  - FLUID OVERLOAD [None]
  - OEDEMA PERIPHERAL [None]
  - PAIN IN EXTREMITY [None]
  - WEIGHT INCREASED [None]
